FAERS Safety Report 7282342-8 (Version None)
Quarter: 2011Q1

REPORT INFORMATION
  Report Type: 
  Country: None (occurrence: None)
  Receive Date: 20110209
  Receipt Date: 20110127
  Transmission Date: 20110831
  Serious: Yes (Hospitalization, Other)
  Sender: FDA-Public Use
  Company Number: US-CELGENEUS-163-C5013-11011195

PATIENT
  Sex: Female
  Weight: 57.4 kg

DRUGS (18)
  1. OXYCODONE HCL [Concomitant]
     Indication: PAIN
     Route: 048
     Dates: start: 20100816
  2. LISINOPRIL AND HYDROCHLOROTHIAZIDE [Concomitant]
     Indication: HYPERTENSION
     Dosage: 20/125MG HALF TAB
     Route: 048
     Dates: start: 20100806, end: 20110106
  3. DIPHENHYDRAMINE [Concomitant]
     Indication: RASH
     Dosage: 2%
     Route: 061
     Dates: start: 20110106
  4. DIPHENHYDRAMINE [Concomitant]
     Route: 051
     Dates: start: 20110112
  5. DIPHENHYDRAMINE [Concomitant]
     Route: 051
  6. PROCHLORPERAZINE [Concomitant]
     Indication: NAUSEA
     Route: 048
     Dates: start: 20101216
  7. CC-5013 [Suspect]
     Route: 048
     Dates: start: 20101216, end: 20110106
  8. COLACE [Concomitant]
     Indication: CONSTIPATION
     Route: 048
     Dates: start: 20100907
  9. VICODIN [Concomitant]
     Indication: PAIN
     Dosage: 5/500MG
     Route: 048
     Dates: start: 20100806, end: 20101216
  10. LISINOPRIL AND HYDROCHLOROTHIAZIDE [Concomitant]
     Dosage: 20/125MG
     Route: 048
     Dates: start: 20110116
  11. SENNA [Concomitant]
     Indication: CONSTIPATION
     Route: 048
     Dates: start: 20100901
  12. SUNITINIB [Suspect]
     Route: 065
     Dates: start: 20101216, end: 20110106
  13. FERROUS SULFATE TAB [Concomitant]
     Indication: SUPPLEMENTATION THERAPY
     Route: 048
     Dates: start: 20100806
  14. IMMODIUM OTC [Concomitant]
     Route: 048
  15. ONDANSETRON [Concomitant]
     Indication: NAUSEA
     Route: 048
     Dates: start: 20110106
  16. ONDANSETRON [Concomitant]
     Route: 051
  17. CALTRATE 600 [Concomitant]
     Indication: SUPPLEMENTATION THERAPY
     Route: 048
     Dates: start: 20100806
  18. ROBITUSSIN OTC [Concomitant]
     Indication: COUGH
     Route: 048
     Dates: start: 20101209

REACTIONS (1)
  - HYPERSENSITIVITY [None]
